FAERS Safety Report 21361303 (Version 2)
Quarter: 2022Q3

REPORT INFORMATION
  Report Type: Report from Study
  Country: US (occurrence: US)
  Receive Date: 20220921
  Receipt Date: 20220930
  Transmission Date: 20221027
  Serious: No
  Sender: FDA-Public Use
  Company Number: None

PATIENT
  Sex: Female

DRUGS (3)
  1. HUMIRA [Suspect]
     Active Substance: ADALIMUMAB
     Indication: Hidradenitis
     Dosage: CITRATE FREE
     Route: 058
  2. Moderna [Concomitant]
     Indication: COVID-19 immunisation
     Dosage: ONCE?1ST DOSE
     Route: 030
     Dates: start: 202111, end: 202111
  3. Moderna [Concomitant]
     Indication: COVID-19 immunisation
     Dosage: ONCE?2ND DOSE
     Route: 030
     Dates: start: 202111, end: 202111

REACTIONS (1)
  - Hidradenitis [Not Recovered/Not Resolved]
